FAERS Safety Report 7312032-4 (Version None)
Quarter: 2011Q1

REPORT INFORMATION
  Report Type: 
  Country: None (occurrence: None)
  Receive Date: 20110224
  Receipt Date: 20110210
  Transmission Date: 20110831
  Serious: Yes (Death)
  Sender: FDA-Public Use
  Company Number: US-SHIONOGI USA, INC-2011000014

PATIENT
  Age: 59 Year
  Sex: Female

DRUGS (10)
  1. TRANDOLAPRIL W/VERAPAMIL [Suspect]
  2. CLONIDINE [Suspect]
  3. SERTRALINE [Suspect]
  4. AMLODIPINE [Suspect]
  5. HYDROCODONE BITARTRATE AND ACETAMINOPHEN [Suspect]
  6. LAMOTRIGINE [Suspect]
  7. LEVOTHYROXINE SODIUM [Suspect]
  8. FENOFIBRATE [Suspect]
  9. EZETIMIBE/SAMVASTATIN [Suspect]
  10. PROMETHAZINE [Suspect]

REACTIONS (1)
  - COMPLETED SUICIDE [None]
